FAERS Safety Report 9853496 (Version 1)
Quarter: 2014Q1

REPORT INFORMATION
  Report Type: Spontaneous
  Country: FR (occurrence: FR)
  Receive Date: 20140129
  Receipt Date: 20140129
  Transmission Date: 20141002
  Serious: Yes (Hospitalization)
  Sender: FDA-Public Use
  Company Number: FR-GLAXOSMITHKLINE-B0963184A

PATIENT
  Age: 78 Year
  Sex: Female

DRUGS (2)
  1. ARIXTRA [Suspect]
     Indication: THROMBOSIS PROPHYLAXIS
     Dosage: 2.5MG PER DAY
     Route: 058
     Dates: start: 20131125, end: 20140114
  2. KARDEGIC [Suspect]
     Indication: PRODUCT USED FOR UNKNOWN INDICATION
     Dosage: 75MG PER DAY
     Route: 048

REACTIONS (3)
  - Haematoma [Not Recovered/Not Resolved]
  - Haemoglobin decreased [Recovering/Resolving]
  - Off label use [Unknown]
